FAERS Safety Report 4366613-0 (Version None)
Quarter: 2004Q2

REPORT INFORMATION
  Report Type: 
  Country: None (occurrence: None)
  Receive Date: 20040520
  Receipt Date: 20040505
  Transmission Date: 20050107
  Serious: Yes (Hospitalization, Other)
  Sender: FDA-Public Use
  Company Number: 190311

PATIENT
  Age: 52 Year
  Sex: Female

DRUGS (2)
  1. AVONEX [Suspect]
     Indication: MULTIPLE SCLEROSIS
     Dosage: 30 MCG QW IM
     Route: 030
     Dates: start: 20030801
  2. AVONEX [Suspect]
     Indication: MULTIPLE SCLEROSIS
     Dosage: 3- MCG QW IM
     Route: 030

REACTIONS (9)
  - CHOLELITHIASIS [None]
  - COLON CANCER [None]
  - DEHYDRATION [None]
  - DIVERTICULUM INTESTINAL [None]
  - HAEMORRHOIDS [None]
  - HELICOBACTER GASTRITIS [None]
  - PANCREATITIS [None]
  - RECTAL ADENOMA [None]
  - SINUSITIS [None]
